FAERS Safety Report 19827944 (Version 1)
Quarter: 2021Q3

REPORT INFORMATION
  Report Type: Spontaneous
  Country: LV (occurrence: LV)
  Receive Date: 20210914
  Receipt Date: 20210914
  Transmission Date: 20211014
  Serious: Yes (Other)
  Sender: FDA-Public Use
  Company Number: LV-BAXTER-2021BAX017729

PATIENT
  Age: 20 Year
  Sex: Male
  Weight: 45 kg

DRUGS (6)
  1. PROPOFOL CLARIS 10MG/ML EMULSIJA INJEKCIJAM VAI INFUZIJAM [Suspect]
     Active Substance: PROPOFOL
     Indication: ANAESTHESIA PROCEDURE
     Route: 042
  2. FENTANYL. [Suspect]
     Active Substance: FENTANYL
     Indication: MAINTENANCE OF ANAESTHESIA
     Dosage: 0.5?1 MKG/KG
     Route: 042
  3. MIDAZOLAM BAXTER 5 MG/ML SKIDUMS INJEKCIJAM/INFUZIJAM [Suspect]
     Active Substance: MIDAZOLAM HYDROCHLORIDE
     Indication: SEDATION
     Route: 042
  4. FENTANYL. [Suspect]
     Active Substance: FENTANYL
     Indication: INDUCTION OF ANAESTHESIA
     Dosage: 2 MKG/KG
     Route: 042
  5. KETAMINE [Suspect]
     Active Substance: KETAMINE
     Indication: MAINTENANCE OF ANAESTHESIA
     Dosage: 0.5?1 MG/KG
     Route: 042
  6. PROPOFOL CLARIS 10MG/ML EMULSIJA  INJEKCIJAM VAI INFUZIJAM [Suspect]
     Active Substance: PROPOFOL
     Indication: MAINTENANCE OF ANAESTHESIA
     Dosage: ANESTHESIA IS MAINTAINED WITH A CONTINUOUS INFUSION OF PROPAFOL AT 1?3 MG / KG / H
     Route: 041

REACTIONS (2)
  - Vein rupture [Recovered/Resolved]
  - Vein disorder [Recovered/Resolved]
